FAERS Safety Report 21208862 (Version 1)
Quarter: 2022Q3

REPORT INFORMATION
  Report Type: Spontaneous
  Country: US (occurrence: None)
  Receive Date: 20220812
  Receipt Date: 20220812
  Transmission Date: 20221026
  Serious: Yes (Hospitalization, Disabling)
  Sender: FDA-Public Use
  Company Number: None

PATIENT
  Age: 38 Year
  Sex: Female
  Weight: 76.5 kg

DRUGS (8)
  1. KENALOG [Suspect]
     Active Substance: TRIAMCINOLONE ACETONIDE
     Indication: Product used for unknown indication
     Dosage: OTHER QUANTITY : 4 INJECTION(S);?OTHER ROUTE : NERVE BLOCK INJECTIONS;?
     Route: 050
     Dates: start: 20220803, end: 20220803
  2. GABAPENTIN [Concomitant]
     Active Substance: GABAPENTIN
  3. PRAVASTATIN [Concomitant]
     Active Substance: PRAVASTATIN
  4. TOPAMAX [Concomitant]
     Active Substance: TOPIRAMATE
  5. METOPROLOL [Concomitant]
     Active Substance: METOPROLOL
  6. POTASSIUM [Concomitant]
     Active Substance: POTASSIUM
  7. VITAMINS [Concomitant]
     Active Substance: VITAMINS
  8. MELATONIN [Concomitant]
     Active Substance: MELATONIN

REACTIONS (9)
  - Arrhythmia [None]
  - Feeling of body temperature change [None]
  - Headache [None]
  - Arthralgia [None]
  - Diverticulitis [None]
  - Nausea [None]
  - Fatigue [None]
  - Anxiety [None]
  - Insomnia [None]

NARRATIVE: CASE EVENT DATE: 20220803
